FAERS Safety Report 6850541-2 (Version None)
Quarter: 2010Q3

REPORT INFORMATION
  Report Type: 
  Country: None (occurrence: None)
  Receive Date: 20100716
  Receipt Date: 20071016
  Transmission Date: 20110219
  Serious: No
  Sender: FDA-Public Use
  Company Number: US-PFIZER INC-2007088242

PATIENT
  Sex: Male
  Weight: 61.4 kg

DRUGS (18)
  1. CHANTIX [Suspect]
     Indication: SMOKING CESSATION THERAPY
     Dates: start: 20061201
  2. PLAVIX [Concomitant]
  3. ISOSORBIDE [Concomitant]
  4. ENALAPRIL MALEATE [Concomitant]
     Indication: HYPERTENSION
  5. ZOCOR [Concomitant]
     Indication: BLOOD CHOLESTEROL INCREASED
  6. FUROSEMIDE [Concomitant]
  7. POTASSIUM CHLORIDE [Concomitant]
  8. DEXAMFETAMINE [Concomitant]
  9. AMITRIPTYLINE HYDROCHLORIDE [Concomitant]
     Indication: DEPRESSION
  10. REQUIP [Concomitant]
     Indication: RESTLESS LEGS SYNDROME
  11. SOMA [Concomitant]
  12. HYDROCODONE [Concomitant]
  13. FISH OIL [Concomitant]
  14. ZOLPIDEM TARTRATE [Concomitant]
     Indication: SLEEP DISORDER
  15. ACETYLSALICYLIC ACID [Concomitant]
  16. MAGNESIUM [Concomitant]
  17. FOLIC ACID [Concomitant]
  18. CENTRUM SILVER [Concomitant]

REACTIONS (3)
  - ANXIETY [None]
  - DYSPNOEA [None]
  - NASAL SEPTUM DEVIATION [None]
